FAERS Safety Report 25675754 (Version 1)
Quarter: 2025Q3

REPORT INFORMATION
  Report Type: Spontaneous
  Country: EU (occurrence: EU)
  Receive Date: 20250813
  Receipt Date: 20250813
  Transmission Date: 20251021
  Serious: Yes (Hospitalization)
  Sender: TEVA
  Company Number: None

PATIENT
  Age: 32 Year
  Sex: Male
  Weight: 95 kg

DRUGS (1)
  1. QUETIAPINE [Suspect]
     Active Substance: QUETIAPINE
     Indication: Brief psychotic disorder with marked stressors
     Dosage: GRADUAL INCREASE IN DOSAGE UP TO 750 MG/DAY
     Route: 048
     Dates: start: 202409

REACTIONS (1)
  - Psoriasis [Not Recovered/Not Resolved]

NARRATIVE: CASE EVENT DATE: 20240901
